FAERS Safety Report 9967643 (Version 1)
Quarter: 2014Q1

REPORT INFORMATION
  Report Type: Report from Study
  Country: US (occurrence: US)
  Receive Date: 20140305
  Receipt Date: 20140305
  Transmission Date: 20141002
  Serious: Yes (Other)
  Sender: FDA-Public Use
  Company Number: US-ROCHE-1344502

PATIENT
  Age: 77 Year
  Sex: Male

DRUGS (18)
  1. LUCENTIS [Suspect]
     Indication: DIABETIC RETINAL OEDEMA
     Route: 050
  2. LUCENTIS [Suspect]
     Indication: DIABETIC RETINOPATHY
  3. LUCENTIS [Suspect]
     Indication: OPTIC ISCHAEMIC NEUROPATHY
  4. LUCENTIS [Suspect]
     Indication: CHOROID NEOPLASM
  5. LUCENTIS [Suspect]
     Indication: CATARACT
  6. LUCENTIS [Suspect]
     Indication: OPTIC ATROPHY
  7. LUCENTIS [Suspect]
     Indication: VITREOUS DETACHMENT
  8. LUCENTIS [Suspect]
     Indication: MACULAR DEGENERATION
  9. AVASTIN [Suspect]
     Indication: PRODUCT USED FOR UNKNOWN INDICATION
     Route: 065
  10. ASPIRIN [Concomitant]
  11. FISH OIL [Concomitant]
  12. FLUORESCEIN [Concomitant]
  13. MONOPRIL [Concomitant]
  14. HUMALOG [Concomitant]
     Dosage: 100 UNITS/ML
     Route: 058
  15. LANTUS [Concomitant]
     Dosage: 100 UNITS/ML
     Route: 058
  16. ONGLYZA [Concomitant]
     Route: 048
  17. ONGLYZA [Concomitant]
     Route: 048
  18. PRAVACHOL [Concomitant]
     Route: 048

REACTIONS (11)
  - Eye pruritus [Unknown]
  - Eye injury [Recovered/Resolved]
  - Visual acuity reduced [Unknown]
  - Drug ineffective [Unknown]
  - Vitreous floaters [Unknown]
  - Visual field defect [Unknown]
  - Eye pain [Unknown]
  - Foreign body sensation in eyes [Unknown]
  - Intraocular lens implant [Unknown]
  - Vision blurred [Unknown]
  - Lacrimation increased [Unknown]
